FAERS Safety Report 19758486 (Version 4)
Quarter: 2021Q4

REPORT INFORMATION
  Report Type: Report from Study
  Country: CO (occurrence: CO)
  Receive Date: 20210827
  Receipt Date: 20211012
  Transmission Date: 20220304
  Serious: Yes (Other)
  Sender: FDA-Public Use
  Company Number: CO-TAKEDA-2021TUS052808

PATIENT
  Age: 39 Year
  Sex: Male
  Weight: 87 kg

DRUGS (5)
  1. HEMOFIL M [Suspect]
     Active Substance: ANTIHEMOPHILIC FACTOR HUMAN
     Indication: Product used for unknown indication
     Dosage: 2500 INTERNATIONAL UNIT
     Route: 042
     Dates: start: 20210213
  2. HEMOFIL M [Suspect]
     Active Substance: ANTIHEMOPHILIC FACTOR HUMAN
     Dosage: 2500 INTERNATIONAL UNIT
     Route: 065
  3. PREGABALIN [Concomitant]
     Active Substance: PREGABALIN
     Route: 048
  4. INSULIN ASPART [Concomitant]
     Active Substance: INSULIN ASPART
  5. ACETAMINOPHEN [Concomitant]
     Active Substance: ACETAMINOPHEN

REACTIONS (5)
  - Haemorrhage [Recovered/Resolved]
  - Purpura [Unknown]
  - Depression [Unknown]
  - Rash [Recovered/Resolved]
  - Pruritus [Recovered/Resolved]

NARRATIVE: CASE EVENT DATE: 20210814
